FAERS Safety Report 6530407-8 (Version None)
Quarter: 2010Q1

REPORT INFORMATION
  Report Type: 
  Country: None (occurrence: None)
  Receive Date: 20100106
  Receipt Date: 20100106
  Transmission Date: 20100710
  Serious: Yes (Hospitalization)
  Sender: FDA-Public Use
  Company Number: None

PATIENT
  Age: 62 Year
  Sex: Male
  Weight: 118.7 kg

DRUGS (1)
  1. PREDNISONE [Suspect]
     Indication: IDIOPATHIC THROMBOCYTOPENIC PURPURA
     Dosage: 100 MG EVERY DAY PO
     Route: 048
     Dates: start: 20090917, end: 20090930

REACTIONS (11)
  - ACUTE MYOCARDIAL INFARCTION [None]
  - ADRENAL INSUFFICIENCY [None]
  - AGITATION [None]
  - ALTERED STATE OF CONSCIOUSNESS [None]
  - CONFUSIONAL STATE [None]
  - DISORIENTATION [None]
  - IDIOPATHIC THROMBOCYTOPENIC PURPURA [None]
  - MENTAL STATUS CHANGES [None]
  - NAUSEA [None]
  - PSYCHOTIC DISORDER [None]
  - VOMITING [None]
